FAERS Safety Report 9337136 (Version 2)
Quarter: 2013Q3

REPORT INFORMATION
  Report Type: Report from Study
  Country: PR (occurrence: PR)
  Receive Date: 20130607
  Receipt Date: 20130801
  Transmission Date: 20140515
  Serious: Yes (Hospitalization, Other)
  Sender: FDA-Public Use
  Company Number: PR-ABBOTT-13P-131-1086042-00

PATIENT
  Age: 74 Year
  Sex: Female
  Weight: 49.03 kg

DRUGS (5)
  1. HUMIRA [Suspect]
     Indication: RHEUMATOID ARTHRITIS
     Route: 058
     Dates: start: 201210, end: 201305
  2. SYNTHROID [Concomitant]
     Indication: THYROID DISORDER
     Route: 048
  3. RELAFEN [Concomitant]
     Indication: INFLAMMATION
     Route: 048
  4. METOPROLOL [Concomitant]
     Indication: HYPERTENSION
     Route: 048
  5. HUMULIN N [Concomitant]
     Indication: DIABETES MELLITUS
     Route: 058

REACTIONS (3)
  - Wound dehiscence [Recovered/Resolved]
  - Toe amputation [Recovered/Resolved]
  - Wound infection [Recovered/Resolved]
